FAERS Safety Report 23986492 (Version 2)
Quarter: 2024Q3

REPORT INFORMATION
  Report Type: Spontaneous
  Country: IT (occurrence: IT)
  Receive Date: 20240618
  Receipt Date: 20240704
  Transmission Date: 20241016
  Serious: Yes (Hospitalization, Other)
  Sender: CIPLA
  Company Number: IT-MINISAL02-988983

PATIENT

DRUGS (3)
  1. RIVAROXABAN [Suspect]
     Active Substance: RIVAROXABAN
     Indication: Product used for unknown indication
     Dosage: 10 MILLIGRAM (TABLET)
     Route: 048
     Dates: start: 20231201, end: 20240301
  2. CLOPIDOGREL BISULFATE [Suspect]
     Active Substance: CLOPIDOGREL BISULFATE
     Indication: Product used for unknown indication
     Dosage: 75 MG, UNK
     Route: 048
     Dates: start: 20231201
  3. ASPIRIN [Suspect]
     Active Substance: ASPIRIN
     Indication: Product used for unknown indication
     Dosage: 100 MG, UNK
     Route: 048
     Dates: start: 20000101, end: 20240301

REACTIONS (1)
  - Haemorrhagic erosive gastritis [Recovered/Resolved]

NARRATIVE: CASE EVENT DATE: 20240301
